FAERS Safety Report 14859583 (Version 3)
Quarter: 2018Q3

REPORT INFORMATION
  Report Type: Spontaneous
  Country: US (occurrence: US)
  Receive Date: 20180508
  Receipt Date: 20180726
  Transmission Date: 20181010
  Serious: No
  Sender: FDA-Public Use
  Company Number: US-PFIZER INC-2018184504

PATIENT
  Age: 60 Year
  Sex: Female
  Weight: 78 kg

DRUGS (9)
  1. LETROZOLE. [Suspect]
     Active Substance: LETROZOLE
     Indication: CHEMOTHERAPY
  2. OMEPRAZOLE. [Concomitant]
     Active Substance: OMEPRAZOLE
     Indication: GASTRITIS EROSIVE
  3. OMEPRAZOLE. [Concomitant]
     Active Substance: OMEPRAZOLE
     Indication: DUODENAL ULCER
  4. BUPROPION. [Concomitant]
     Active Substance: BUPROPION
     Indication: DEPRESSION
     Dosage: 300 MG, 1X/DAY
     Route: 048
  5. VALACYCLOVIR [Concomitant]
     Active Substance: VALACYCLOVIR HYDROCHLORIDE
     Indication: HERPES VIRUS INFECTION
     Dosage: 500 MG, 1X/DAY
     Route: 048
  6. LETROZOLE. [Suspect]
     Active Substance: LETROZOLE
     Indication: BLOOD OESTROGEN ABNORMAL
     Dosage: 2.5 MG, 1X/DAY
     Route: 048
     Dates: start: 201609
  7. BUPROPION. [Concomitant]
     Active Substance: BUPROPION
     Dosage: UNK (INCREASED DOSE)
  8. OMEPRAZOLE. [Concomitant]
     Active Substance: OMEPRAZOLE
     Indication: GASTROOESOPHAGEAL REFLUX DISEASE
     Dosage: 40 MG, 1X/DAY
     Route: 048
     Dates: start: 201604
  9. IBRANCE [Suspect]
     Active Substance: PALBOCICLIB
     Indication: CHEMOTHERAPY
     Dosage: 125 MG, CYCLIC (ONCE DAILY FOR 21 DAYS ON AND 7 DAYS OFF MEDICATION)
     Route: 048
     Dates: start: 201609

REACTIONS (7)
  - Feeling abnormal [Recovered/Resolved]
  - Dry skin [Not Recovered/Not Resolved]
  - Fatigue [Unknown]
  - Vulvovaginal dryness [Not Recovered/Not Resolved]
  - Dry eye [Not Recovered/Not Resolved]
  - Asthenia [Unknown]
  - Somnolence [Recovering/Resolving]

NARRATIVE: CASE EVENT DATE: 2016
